FAERS Safety Report 15985749 (Version 1)
Quarter: 2019Q1

REPORT INFORMATION
  Report Type: Spontaneous
  Country: US (occurrence: US)
  Receive Date: 20190220
  Receipt Date: 20190220
  Transmission Date: 20190418
  Serious: No
  Sender: FDA-Public Use
  Company Number: US-JAZZ-2018-US-006516

PATIENT
  Sex: Male

DRUGS (1)
  1. FAZACLO [Suspect]
     Active Substance: CLOZAPINE
     Indication: DEPRESSION
     Dosage: UNK MG, QD
     Route: 048
     Dates: start: 2013, end: 20180419

REACTIONS (2)
  - Screaming [Unknown]
  - Insomnia [Unknown]

NARRATIVE: CASE EVENT DATE: 20180419
